FAERS Safety Report 19240979 (Version 1)
Quarter: 2021Q2

REPORT INFORMATION
  Report Type: Spontaneous
  Country: BR (occurrence: BR)
  Receive Date: 20210511
  Receipt Date: 20210511
  Transmission Date: 20210717
  Serious: Yes (Other)
  Sender: FDA-Public Use
  Company Number: BR-NOVOPROD-809897

PATIENT
  Age: 41 Year
  Sex: Male
  Weight: 123.8 kg

DRUGS (4)
  1. ORLISTAT. [Concomitant]
     Active Substance: ORLISTAT
     Dosage: 120 MG, QD
     Route: 065
  2. SAXENDA [Suspect]
     Active Substance: LIRAGLUTIDE
     Dosage: 1.2 MG
     Route: 058
  3. SAXENDA [Suspect]
     Active Substance: LIRAGLUTIDE
     Indication: OBESITY
     Dosage: 0.6 MG
     Route: 058
  4. BUPROPION. [Concomitant]
     Active Substance: BUPROPION
     Dosage: 150 MG
     Route: 065

REACTIONS (5)
  - Umbilical hernia [Recovered/Resolved]
  - Post procedural infection [Unknown]
  - Inguinal hernia [Recovered/Resolved]
  - Apathy [Unknown]
  - Anxiety [Unknown]

NARRATIVE: CASE EVENT DATE: 20180827
